FAERS Safety Report 5148261-8 (Version None)
Quarter: 2006Q4

REPORT INFORMATION
  Report Type: 
  Country: None (occurrence: None)
  Receive Date: 20061107
  Receipt Date: 20061023
  Transmission Date: 20070319
  Serious: Yes (Other)
  Sender: FDA-Public Use
  Company Number: 2006BM000165

PATIENT
  Age: 45 Year
  Sex: Male

DRUGS (8)
  1. PREDNISOLONE ACETATE [Suspect]
     Indication: CHOROIDAL EFFUSION
     Dosage: Q6H;TOP
     Route: 061
     Dates: start: 20010401, end: 20010501
  2. EDEMOX [Concomitant]
  3. POLY-PRED [Concomitant]
  4. CYCLOPENTHOLATE [Concomitant]
  5. OFTACILOX [Concomitant]
  6. GENTAMICIN [Concomitant]
  7. PREDNISONE TAB [Concomitant]
  8. ORAPRED [Suspect]
     Indication: CHOROIDAL EFFUSION
     Dosage: Q6H;TOP
     Route: 061

REACTIONS (7)
  - CHOROIDAL HAEMORRHAGE [None]
  - CORNEAL EXFOLIATION [None]
  - CORNEAL SCAR [None]
  - DRUG TOXICITY [None]
  - EYE OPERATION COMPLICATION [None]
  - ULCERATIVE KERATITIS [None]
  - VITREOUS HAEMORRHAGE [None]
